FAERS Safety Report 9621281 (Version 2)
Quarter: 2013Q4

REPORT INFORMATION
  Report Type: Spontaneous
  Country: AU (occurrence: AU)
  Receive Date: 20131015
  Receipt Date: 20131028
  Transmission Date: 20140711
  Serious: Yes (Hospitalization, Other)
  Sender: FDA-Public Use
  Company Number: AU-AMGEN-AUSSP2013070807

PATIENT
  Sex: Female
  Weight: 68 kg

DRUGS (4)
  1. PROLIA [Suspect]
     Indication: OSTEOPOROSIS POSTMENOPAUSAL
     Dosage: UNK
     Route: 065
     Dates: start: 20120723
  2. CRESTOR [Concomitant]
  3. EFFEXOR [Concomitant]
  4. NITROLINGUAL [Concomitant]

REACTIONS (4)
  - Coronary artery disease [Unknown]
  - Chest pain [Unknown]
  - Coeliac disease [Unknown]
  - Weight increased [Unknown]
